FAERS Safety Report 6651392-4 (Version None)
Quarter: 2010Q1

REPORT INFORMATION
  Report Type: 
  Country: None (occurrence: None)
  Receive Date: 20100325
  Receipt Date: 20100315
  Transmission Date: 20100710
  Serious: Yes (Other)
  Sender: FDA-Public Use
  Company Number: CA-JNJFOC-20100305166

PATIENT
  Sex: Female

DRUGS (3)
  1. MOTRIN IB [Suspect]
     Route: 048
  2. MOTRIN IB [Suspect]
     Indication: DYSMENORRHOEA
     Route: 048
  3. CIPROFLOXACIN [Suspect]
     Indication: INFECTION

REACTIONS (7)
  - BLOOD PRESSURE INCREASED [None]
  - CONFUSIONAL STATE [None]
  - DIZZINESS [None]
  - DYSURIA [None]
  - MALAISE [None]
  - NAUSEA [None]
  - WHITE BLOOD CELL COUNT INCREASED [None]
